FAERS Safety Report 8947585 (Version 2)
Quarter: 2012Q4

REPORT INFORMATION
  Report Type: 
  Country: CA (occurrence: CA)
  Receive Date: 20121205
  Receipt Date: 20121214
  Transmission Date: 20130627
  Serious: Yes (Other)
  Sender: FDA-Public Use
  Company Number: CA-BAXTER-2012BAX025405

PATIENT
  Age: 10 Year
  Sex: Female

DRUGS (2)
  1. GAMMAGARD LIQUID [Suspect]
     Indication: KAWASAKI^S DISEASE
     Route: 042
     Dates: start: 20121016, end: 20121016
  2. GAMMAGARD LIQUID [Suspect]
     Route: 042
     Dates: start: 20121018, end: 20121018

REACTIONS (5)
  - Haemoglobin decreased [Recovered/Resolved]
  - Reticulocyte count increased [Recovered/Resolved]
  - Blood bilirubin increased [Recovered/Resolved]
  - Haptoglobin increased [Recovered/Resolved]
  - Anaemia [Unknown]
